FAERS Safety Report 9831076 (Version 1)
Quarter: 2014Q1

REPORT INFORMATION
  Report Type: Report from Study
  Country: US (occurrence: US)
  Receive Date: 20140120
  Receipt Date: 20140120
  Transmission Date: 20141002
  Serious: Yes (Other)
  Sender: FDA-Public Use
  Company Number: US-ROCHE-1335597

PATIENT
  Age: 12 Year
  Sex: Male
  Weight: 38.86 kg

DRUGS (3)
  1. NUTROPIN AQ [Suspect]
     Indication: GROWTH HORMONE DEFICIENCY
     Route: 058
     Dates: end: 20130711
  2. NUTROPIN AQ [Suspect]
     Route: 058
     Dates: start: 20130711
  3. CITALOPRAM [Concomitant]
     Dosage: 1/2 PILL
     Route: 048

REACTIONS (4)
  - Goitre [Unknown]
  - Nasopharyngitis [Unknown]
  - Oropharyngeal pain [Unknown]
  - Drug dose omission [Unknown]
